FAERS Safety Report 4377485-2 (Version None)
Quarter: 2004Q2

REPORT INFORMATION
  Report Type: 
  Country: None (occurrence: None)
  Receive Date: 20040609
  Receipt Date: 20040526
  Transmission Date: 20050107
  Serious: Yes (Other)
  Sender: FDA-Public Use
  Company Number: EWC040539408

PATIENT
  Age: 47 Year
  Sex: Female

DRUGS (4)
  1. OLANZAPINE [Suspect]
     Indication: SCHIZOPHRENIA
     Dosage: 7.5 MG DAY
     Dates: start: 20031126, end: 20031127
  2. MIDODRINE HCL [Concomitant]
  3. CLOZAPINE [Concomitant]
  4. REMERON [Concomitant]

REACTIONS (9)
  - ABDOMINAL RIGIDITY [None]
  - ALANINE AMINOTRANSFERASE INCREASED [None]
  - ASPARTATE AMINOTRANSFERASE INCREASED [None]
  - BILIARY COLIC [None]
  - BLOOD ALKALINE PHOSPHATASE INCREASED [None]
  - BLOOD LACTATE DEHYDROGENASE INCREASED [None]
  - GAMMA-GLUTAMYLTRANSFERASE INCREASED [None]
  - URINARY TRACT INFECTION [None]
  - VOMITING [None]
